FAERS Safety Report 7313587 (Version 2)
Quarter: 2014Q3

REPORT INFORMATION
  Report Type: Spontaneous
  Country: US (occurrence: None)
  Receive Date: 20100217
  Receipt Date: 20140714
  Transmission Date: 20150326
  Serious: Yes (Hospitalization, Other)
  Sender: FDA-Public Use
  Company Number: 2010S1000869

PATIENT
  Age: 66 Year
  Sex: Female
  Weight: 63.96 kg

DRUGS (9)
  1. DOXEPIN (DOXEPIN) (DOXEPIN) [Concomitant]
     Active Substance: DOXEPIN
  2. NEURONTIN [Concomitant]
     Active Substance: GABAPENTIN
  3. DURAGESIC PATCH (FENTANYL) [Concomitant]
  4. DULCOLAX [Suspect]
     Active Substance: BISACODYL OR DOCUSATE SODIUM
     Indication: COLONOSCOPY
     Route: 048
  5. PROZAC [Concomitant]
     Active Substance: FLUOXETINE HYDROCHLORIDE
  6. ZANAFLEX [Concomitant]
     Active Substance: TIZANIDINE HYDROCHLORIDE
  7. PHOSPHO-SODA [Suspect]
     Active Substance: SODIUM PHOSPHATE, DIBASIC\SODIUM PHOSPHATE, MONOBASIC
     Indication: COLONOSCOPY
     Dosage: ; PO
     Route: 048
     Dates: start: 20050628, end: 20050629
  8. NORCO (PARACETAMOL, HYDROCODONE BITARTRATE) [Concomitant]
  9. LIDODERM [Concomitant]
     Active Substance: LIDOCAINE

REACTIONS (14)
  - Hypertension [None]
  - Short-bowel syndrome [None]
  - Swelling [None]
  - Hyperkalaemia [None]
  - Nephrogenic anaemia [None]
  - Renal failure [None]
  - Nephrosclerosis [None]
  - Pneumonia [None]
  - Diarrhoea [None]
  - Hyperparathyroidism [None]
  - Dehydration [None]
  - Cerebrovascular disorder [None]
  - Cerebrovascular accident [None]
  - Metabolic acidosis [None]

NARRATIVE: CASE EVENT DATE: 2006
